FAERS Safety Report 7396092-0 (Version None)
Quarter: 2011Q1

REPORT INFORMATION
  Report Type: 
  Country: None (occurrence: None)
  Receive Date: 20110301
  Receipt Date: 20100611
  Transmission Date: 20110831
  Serious: Yes (Other)
  Sender: FDA-Public Use
  Company Number: 2211100-US-JNJFOC-20100503025

PATIENT
  Sex: Female

DRUGS (1)
  1. CHILDREN'S MOTRIN [Suspect]
     Indication: ILL-DEFINED DISORDER

REACTIONS (2)
  - PRODUCT QUALITY ISSUE [None]
  - HAEMATOCHEZIA [None]
